FAERS Safety Report 6510185-9 (Version None)
Quarter: 2009Q4

REPORT INFORMATION
  Report Type: 
  Country: None (occurrence: None)
  Receive Date: 20091217
  Receipt Date: 20091201
  Transmission Date: 20100525
  Serious: Yes (Other)
  Sender: FDA-Public Use
  Company Number: DSA_42169_2009

PATIENT
  Age: 65 Year
  Sex: Female

DRUGS (1)
  1. DILTIAZEM [Suspect]
     Indication: HYPERTENSION
     Dosage: (200 MG, ORAL)
     Route: 048
     Dates: start: 20090101

REACTIONS (1)
  - ELECTROCARDIOGRAM QT PROLONGED [None]
